FAERS Safety Report 14598423 (Version 1)
Quarter: 2018Q1

REPORT INFORMATION
  Report Type: Spontaneous
  Country: ZA (occurrence: ZA)
  Receive Date: 20180305
  Receipt Date: 20180305
  Transmission Date: 20180509
  Serious: Yes (Hospitalization, Other)
  Sender: FDA-Public Use
  Company Number: ZA-MYLANLABS-2018M1013701

PATIENT
  Age: 48 Year
  Sex: Female

DRUGS (9)
  1. MYLAN FUROSEMIDE 40 [Suspect]
     Active Substance: FUROSEMIDE
     Indication: DIURETIC THERAPY
     Dosage: 40 MG, UNK
     Route: 048
     Dates: start: 201709
  2. ODIVEN [Concomitant]
     Indication: DEPRESSION
     Dosage: 75 MG, UNK
     Route: 048
  3. ASPEN TRAZODONE [Concomitant]
     Active Substance: TRAZODONE HYDROCHLORIDE
     Indication: DEPRESSION
     Dosage: 100 MG, UNK
     Route: 048
  4. SYMBICORD [Concomitant]
     Active Substance: BUDESONIDE\FORMOTEROL
     Indication: ASTHMA
     Dosage: 160 MG, UNK
     Route: 048
  5. PRAMIPEXOL ?MYLAN? 0,25 MG TABLETTER [Suspect]
     Active Substance: PRAMIPEXOLE
     Indication: PARKINSON^S DISEASE
     Dosage: 0.25 MG, UNK
     Route: 048
     Dates: start: 201701
  6. OMEZ                               /00661201/ [Concomitant]
     Active Substance: OMEPRAZOLE
     Indication: DYSPEPSIA
     Dosage: 40 MG, UNK
     Route: 048
  7. DOPAQUEL [Concomitant]
     Active Substance: QUETIAPINE
     Indication: PSYCHIATRIC SYMPTOM
     Dosage: 25 MG, UNK
     Route: 048
  8. VELTEX [Concomitant]
     Indication: PAIN
     Dosage: 75 MG, UNK
     Route: 048
  9. OXPOLA [Concomitant]
     Active Substance: PRAMIPEXOLE DIHYDROCHLORIDE
     Indication: PARKINSON^S DISEASE
     Dosage: 0.25 MG, UNK
     Route: 048
     Dates: end: 201712

REACTIONS (2)
  - Vomiting [Unknown]
  - Hospitalisation [Unknown]
